FAERS Safety Report 8924338 (Version 3)
Quarter: 2014Q2

REPORT INFORMATION
  Report Type: Spontaneous
  Country: US (occurrence: US)
  Receive Date: 20121126
  Receipt Date: 20140609
  Transmission Date: 20141212
  Serious: Yes (Congenital Anomaly, Other)
  Sender: FDA-Public Use
  Company Number: US-PFIZER INC-2012294014

PATIENT
  Sex: Male

DRUGS (11)
  1. IBUPROFEN [Suspect]
     Indication: FOETAL EXPOSURE DURING PREGNANCY
     Dosage: AS NEEDED
     Route: 064
  2. SERTRALINE HCL [Suspect]
     Indication: FOETAL EXPOSURE DURING PREGNANCY
     Dosage: 50 MG (100 MG (TABLETS) 1/2 TABLET), 1X/DAY
     Route: 064
     Dates: start: 20050929, end: 20060716
  3. TOPAMAX [Suspect]
     Indication: FOETAL EXPOSURE DURING PREGNANCY
     Dosage: 25 MG, 2X/DAY
     Route: 064
     Dates: start: 200509, end: 200512
  4. AMOXICILLIN [Suspect]
     Indication: FOETAL EXPOSURE DURING PREGNANCY
     Dosage: 500 MG, 3X/DAY
     Route: 064
     Dates: start: 20050712, end: 20050803
  5. AMOXICILLIN [Suspect]
     Dosage: 500 MG, 3X/DAY
     Route: 064
     Dates: start: 20060419, end: 20060429
  6. ERRIN [Suspect]
     Indication: FOETAL EXPOSURE DURING PREGNANCY
     Dosage: 0.35 MG (TABLET),ONE TABLET DAILY
     Route: 064
     Dates: start: 200206, end: 200512
  7. IMITREX [Suspect]
     Indication: FOETAL EXPOSURE DURING PREGNANCY
     Dosage: 50 MG (TABLETS) 3 TABLETS DAILY
     Route: 064
     Dates: start: 20050722, end: 20080819
  8. ACETAMINOPHEN/BUTALBITAL [Suspect]
     Indication: FOETAL EXPOSURE DURING PREGNANCY
     Dosage: UNK
     Route: 064
     Dates: start: 200603, end: 200606
  9. CEPHALEXIN [Suspect]
     Indication: FOETAL EXPOSURE DURING PREGNANCY
     Dosage: 250 MG, 4X/DAY
     Route: 064
     Dates: start: 20050405, end: 20060412
  10. CAFFEINE [Suspect]
     Indication: MIGRAINE
     Dosage: UNK
     Route: 064
     Dates: start: 20060120, end: 20070923
  11. MULTIVITAMINS [Concomitant]
     Indication: FOETAL EXPOSURE DURING PREGNANCY
     Route: 064

REACTIONS (14)
  - Maternal exposure timing unspecified [Unknown]
  - Meningomyelocele [Unknown]
  - Otitis media [Unknown]
  - Epilepsy [Unknown]
  - Spina bifida [Unknown]
  - Hydrocephalus [Unknown]
  - Arnold-Chiari malformation [Unknown]
  - Neurogenic bowel [Unknown]
  - Neurogenic bladder [Unknown]
  - Emotional disorder [Unknown]
  - Body temperature fluctuation [Unknown]
  - Inguinal hernia [Unknown]
  - Amnesia [Unknown]
  - Anxiety [Unknown]
